FAERS Safety Report 7313437-8 (Version None)
Quarter: 2011Q1

REPORT INFORMATION
  Report Type: 
  Country: None (occurrence: None)
  Receive Date: 20110225
  Receipt Date: 20110214
  Transmission Date: 20110831
  Serious: No
  Sender: FDA-Public Use
  Company Number: US-PFIZER INC-2011033118

PATIENT
  Sex: Male
  Weight: 83.9 kg

DRUGS (3)
  1. CALAN [Concomitant]
     Indication: HEADACHE
     Dosage: 40 MG, 1X/DAY
     Route: 048
  2. LIPITOR [Suspect]
     Dosage: 10 MG, 1X/DAY
     Route: 048
     Dates: start: 20091017, end: 20110126
  3. TYLENOL [Concomitant]
     Indication: ARTHRITIS
     Dosage: 500 MG, 1X/DAY
     Route: 048

REACTIONS (4)
  - PAIN IN EXTREMITY [None]
  - VITAMIN D DECREASED [None]
  - DYSPNOEA [None]
  - MYALGIA [None]
